FAERS Safety Report 23064040 (Version 4)
Quarter: 2024Q2

REPORT INFORMATION
  Report Type: Other
  Country: CA (occurrence: None)
  Receive Date: 20231013
  Receipt Date: 20240404
  Transmission Date: 20240716
  Serious: Yes (Hospitalization)
  Sender: FDA-Public Use
  Company Number: CA-ROCHE-3433292

PATIENT
  Sex: Male

DRUGS (1)
  1. OCREVUS [Suspect]
     Active Substance: OCRELIZUMAB
     Indication: Relapsing-remitting multiple sclerosis
     Dosage: 300 MG AT DAY 0 AND 14, THEN 600 MG EVERY 6 MONTHS
     Route: 042
     Dates: start: 20220502

REACTIONS (4)
  - Pneumonia [Recovered/Resolved]
  - Dysarthria [Not Recovered/Not Resolved]
  - Malaise [Recovered/Resolved]
  - Type 2 diabetes mellitus [Not Recovered/Not Resolved]
